FAERS Safety Report 11344659 (Version 1)
Quarter: 2015Q3

REPORT INFORMATION
  Report Type: Spontaneous
  Country: US (occurrence: US)
  Receive Date: 20150806
  Receipt Date: 20150806
  Transmission Date: 20151125
  Serious: No
  Sender: FDA-Public Use
  Company Number: US-ENDO PHARMACEUTICALS INC.-2015-001616

PATIENT
  Sex: Male
  Weight: 75.14 kg

DRUGS (5)
  1. CRESTOR [Suspect]
     Active Substance: ROSUVASTATIN CALCIUM
     Indication: BLOOD CHOLESTEROL INCREASED
     Route: 065
  2. PREDNISONE TABLETS [Suspect]
     Active Substance: PREDNISONE
     Indication: RHEUMATOID ARTHRITIS
  3. METOTREXATE [Suspect]
     Active Substance: METHOTREXATE SODIUM
     Indication: RHEUMATOID ARTHRITIS
     Route: 065
     Dates: start: 2000
  4. PREDNISONE TABLETS [Suspect]
     Active Substance: PREDNISONE
     Indication: SWELLING
     Route: 065
  5. SALSALATE. [Suspect]
     Active Substance: SALSALATE
     Indication: ANTIINFLAMMATORY THERAPY
     Route: 065

REACTIONS (2)
  - Rheumatoid arthritis [Not Recovered/Not Resolved]
  - Drug effect decreased [Not Recovered/Not Resolved]
